FAERS Safety Report 5300012-X (Version None)
Quarter: 2007Q2

REPORT INFORMATION
  Report Type: 
  Country: None (occurrence: None)
  Receive Date: 20070417
  Receipt Date: 20070406
  Transmission Date: 20071010
  Serious: Yes (Hospitalization)
  Sender: FDA-Public Use
  Company Number: FR-PFIZER INC-2006152498

PATIENT
  Age: 79 Year
  Sex: Male

DRUGS (2)
  1. XALATAN [Suspect]
     Dosage: TEXT:2 DOSE FORMS
     Route: 061
     Dates: start: 20041222, end: 20060619
  2. MODOPAR [Concomitant]
     Route: 048

REACTIONS (2)
  - ANTINUCLEAR ANTIBODY POSITIVE [None]
  - UVEITIS [None]
